FAERS Safety Report 7205084-3 (Version None)
Quarter: 2010Q4

REPORT INFORMATION
  Report Type: 
  Country: None (occurrence: None)
  Receive Date: 20101230
  Receipt Date: 20101217
  Transmission Date: 20110411
  Serious: Yes (Death, Hospitalization)
  Sender: FDA-Public Use
  Company Number: DE-MERCK-1012DEU00075

PATIENT
  Age: 58 Year

DRUGS (1)
  1. PRIMAXIN [Suspect]
     Indication: ACINETOBACTER INFECTION
     Route: 042

REACTIONS (1)
  - DRUG INEFFECTIVE [None]
